FAERS Safety Report 6795406-X (Version None)
Quarter: 2010Q2

REPORT INFORMATION
  Report Type: 
  Country: None (occurrence: None)
  Receive Date: 20100624
  Receipt Date: 20100624
  Transmission Date: 20101027
  Serious: Yes (Life-Threatening)
  Sender: FDA-Public Use
  Company Number: None

PATIENT
  Age: 64 Year
  Sex: Female
  Weight: 77.1115 kg

DRUGS (1)
  1. CEPHALEXIN [Suspect]
     Indication: INFECTION
     Dosage: 500MG CAP 3X DAILY
     Dates: start: 20100528, end: 20100603

REACTIONS (3)
  - DRUG DOSE OMISSION [None]
  - JOINT SWELLING [None]
  - OEDEMA PERIPHERAL [None]
